FAERS Safety Report 24732268 (Version 2)
Quarter: 2024Q4

REPORT INFORMATION
  Report Type: Spontaneous
  Country: AU (occurrence: AU)
  Receive Date: 20241213
  Receipt Date: 20241219
  Transmission Date: 20250115
  Serious: Yes (Hospitalization)
  Sender: JOHNSON AND JOHNSON
  Company Number: AU-JNJFOC-20241221599

PATIENT
  Age: 14 Year
  Sex: Female

DRUGS (1)
  1. RISPERDAL [Suspect]
     Active Substance: RISPERIDONE
     Indication: Product used for unknown indication
     Dosage: EXPIRATION DATE: UNKNOWN
     Route: 048

REACTIONS (4)
  - Overdose [Unknown]
  - Incorrect dose administered [Unknown]
  - Electrocardiogram QT prolonged [Recovered/Resolved]
  - Device use confusion [Unknown]
